FAERS Safety Report 16485865 (Version 1)
Quarter: 2019Q2

REPORT INFORMATION
  Report Type: Spontaneous
  Country: MY (occurrence: MY)
  Receive Date: 20190627
  Receipt Date: 20190627
  Transmission Date: 20190711
  Serious: Yes (Other)
  Sender: FDA-Public Use
  Company Number: MY-FRESENIUS KABI-FK201907006

PATIENT
  Age: 52 Year
  Sex: Male

DRUGS (1)
  1. PROPOFOL 1% MCT FRESENIUS [Suspect]
     Active Substance: PROPOFOL
     Indication: ENDOTRACHEAL INTUBATION
     Route: 042

REACTIONS (2)
  - Blister [Recovering/Resolving]
  - Swelling [Recovering/Resolving]
